FAERS Safety Report 16844683 (Version 1)
Quarter: 2019Q4

REPORT INFORMATION
  Report Type: Spontaneous
  Country: US (occurrence: US)
  Receive Date: 20190924
  Receipt Date: 20190924
  Transmission Date: 20200122
  Serious: Yes (Hospitalization, Disabling, Other)
  Sender: FDA-Public Use
  Company Number: None

PATIENT
  Age: 57 Year
  Sex: Female

DRUGS (1)
  1. LOSARTAN/HCTZ [Suspect]
     Active Substance: HYDROCHLOROTHIAZIDE\LOSARTAN
     Indication: HYPERTENSION
     Route: 048

REACTIONS (6)
  - Skin weeping [None]
  - Sepsis [None]
  - Cutaneous T-cell lymphoma [None]
  - Rash [None]
  - Renal impairment [None]
  - Skin lesion [None]

NARRATIVE: CASE EVENT DATE: 20190820
